FAERS Safety Report 8312489-6 (Version None)
Quarter: 2012Q2

REPORT INFORMATION
  Report Type: 
  Country: None (occurrence: None)
  Receive Date: 20120425
  Receipt Date: 20120420
  Transmission Date: 20120825
  Serious: Yes (Hospitalization)
  Sender: FDA-Public Use
  Company Number: DE-MERCK-1111DEU00148

PATIENT
  Age: 69 Year
  Sex: Male

DRUGS (3)
  1. VYTORIN [Suspect]
     Route: 048
     Dates: start: 20110101
  2. CANDESARTAN CILEXETIL AND HYDROCHLOROTHIAZIDE [Concomitant]
     Indication: HYPERTENSION
     Route: 048
     Dates: start: 20090101
  3. VYTORIN [Suspect]
     Indication: HYPERCHOLESTEROLAEMIA
     Route: 048
     Dates: start: 20070101, end: 20111124

REACTIONS (3)
  - DEMYELINATING POLYNEUROPATHY [None]
  - ARTHROPOD BITE [None]
  - ALLERGY TO ARTHROPOD STING [None]
